FAERS Safety Report 9090517 (Version 1)
Quarter: 2013Q1

REPORT INFORMATION
  Report Type: Spontaneous
  Country: CA (occurrence: CA)
  Receive Date: 20130201
  Receipt Date: 20130201
  Transmission Date: 20140127
  Serious: Yes (Hospitalization, Other)
  Sender: FDA-Public Use
  Company Number: CA-AMGEN-CANSP2013006418

PATIENT
  Age: 43 Year
  Sex: Female

DRUGS (3)
  1. NEUPOGEN [Suspect]
     Indication: BREAST CANCER STAGE III
     Dosage: UNK
     Dates: start: 20130105, end: 20130105
  2. NEULASTA [Suspect]
     Indication: BREAST CANCER STAGE III
     Dosage: UNK
     Dates: start: 20121207
  3. CHEMOTHERAPEUTICS [Concomitant]
     Indication: BREAST CANCER STAGE III
     Dosage: UNK

REACTIONS (6)
  - Dysphagia [Recovered/Resolved]
  - Oropharyngeal pain [Recovered/Resolved]
  - White blood cell count decreased [Unknown]
  - Febrile neutropenia [Recovered/Resolved]
  - Oesophagitis [Unknown]
  - Gastritis [Unknown]
